FAERS Safety Report 13527511 (Version 2)
Quarter: 2017Q2

REPORT INFORMATION
  Report Type: Report from Study
  Country: US (occurrence: US)
  Receive Date: 20170509
  Receipt Date: 20170511
  Transmission Date: 20170830
  Serious: Yes (Other)
  Sender: FDA-Public Use
  Company Number: US-JNJFOC-20170427221

PATIENT
  Sex: Female

DRUGS (8)
  1. ASCORBIC ACID. [Concomitant]
     Active Substance: ASCORBIC ACID
  2. TYLENOL [Concomitant]
     Active Substance: ACETAMINOPHEN
  3. COUMADIN [Concomitant]
     Active Substance: WARFARIN SODIUM
  4. IMBRUVICA [Suspect]
     Active Substance: IBRUTINIB
     Indication: WALDENSTROM^S MACROGLOBULINAEMIA
     Route: 048
     Dates: start: 20170331, end: 2017
  5. FLONASE [Concomitant]
     Active Substance: FLUTICASONE PROPIONATE
  6. IMBRUVICA [Suspect]
     Active Substance: IBRUTINIB
     Indication: WALDENSTROM^S MACROGLOBULINAEMIA
     Route: 048
     Dates: start: 20170330, end: 2017
  7. LORATADINE. [Concomitant]
     Active Substance: LORATADINE
  8. LOVENOX [Concomitant]
     Active Substance: ENOXAPARIN SODIUM

REACTIONS (3)
  - Cerebrovascular accident [Unknown]
  - Dizziness [Recovered/Resolved]
  - Adverse event [Unknown]
